FAERS Safety Report 5164118-0 (Version None)
Quarter: 2006Q4

REPORT INFORMATION
  Report Type: 
  Country: None (occurrence: None)
  Receive Date: 20061124
  Receipt Date: 20061117
  Transmission Date: 20070319
  Serious: Yes (Death)
  Sender: FDA-Public Use
  Company Number: 163-21880-06100747

PATIENT
  Age: 79 Year
  Sex: Male

DRUGS (3)
  1. REVLIMID [Suspect]
     Indication: MYELODYSPLASTIC SYNDROME
     Dosage: 5 MG, QHS, ORAL
     Route: 048
     Dates: start: 20060822, end: 20060929
  2. TIAZAC [Concomitant]
  3. PROCRIT [Concomitant]

REACTIONS (1)
  - DISEASE PROGRESSION [None]
